FAERS Safety Report 9520169 (Version 1)
Quarter: 2013Q3

REPORT INFORMATION
  Report Type: Spontaneous
  Country: US (occurrence: US)
  Receive Date: 20130912
  Receipt Date: 20130912
  Transmission Date: 20140515
  Serious: Yes (Hospitalization)
  Sender: FDA-Public Use
  Company Number: US-GLAXOSMITHKLINE-A1041232A

PATIENT
  Age: 50 Year
  Sex: Female

DRUGS (3)
  1. ADVAIR [Suspect]
     Indication: DYSPNOEA
     Route: 055
     Dates: start: 20120801
  2. VENTOLIN [Suspect]
     Indication: DYSPNOEA
     Route: 055
     Dates: start: 20120801
  3. VERAMYST [Suspect]
     Indication: DYSPNOEA
     Route: 045
     Dates: start: 20120801

REACTIONS (1)
  - Adverse event [Unknown]
